FAERS Safety Report 5990552-2 (Version None)
Quarter: 2008Q4

REPORT INFORMATION
  Report Type: 
  Country: None (occurrence: None)
  Receive Date: 20081211
  Receipt Date: 20081203
  Transmission Date: 20090506
  Serious: Yes (Death, Hospitalization)
  Sender: FDA-Public Use
  Company Number: CZ-GENENTECH-265250

PATIENT
  Sex: Male

DRUGS (15)
  1. BLINDED ANTI-CD40 [Suspect]
     Indication: DIFFUSE LARGE B-CELL LYMPHOMA
     Dosage: 304 MG, SINGLE
     Route: 042
     Dates: start: 20080707, end: 20080707
  2. BLINDED PLACEBO [Suspect]
     Indication: DIFFUSE LARGE B-CELL LYMPHOMA
     Dosage: 304 MG, SINGLE
     Route: 042
     Dates: start: 20080707, end: 20080707
  3. BLINDED ANTI-CD40 [Suspect]
     Dosage: 152 MG, SINGLE
     Dates: start: 20080704, end: 20080704
  4. BLINDED PLACEBO [Suspect]
     Dosage: 152 MG, SINGLE
     Dates: start: 20080704, end: 20080704
  5. RITUXIMAB [Suspect]
     Indication: DIFFUSE LARGE B-CELL LYMPHOMA
     Dosage: 700 MG, Q3W
     Route: 042
     Dates: start: 20080703, end: 20080703
  6. ETOPOSIDE [Suspect]
     Indication: DIFFUSE LARGE B-CELL LYMPHOMA
     Dosage: 195 MG, Q3W
     Route: 042
     Dates: start: 20080707, end: 20080707
  7. ETOPOSIDE [Suspect]
     Dosage: 195 MG, Q3W
     Route: 042
     Dates: start: 20080706, end: 20080706
  8. ETOPOSIDE [Suspect]
     Dosage: 195 MG, Q3W
     Route: 042
     Dates: start: 20080705, end: 20080705
  9. CARBOPLATIN [Suspect]
     Indication: DIFFUSE LARGE B-CELL LYMPHOMA
     Dosage: 585 MG, Q3W
     Route: 042
     Dates: start: 20080706, end: 20080706
  10. IFOSFAMIDE [Suspect]
     Indication: DIFFUSE LARGE B-CELL LYMPHOMA
     Dosage: 9700 MG, Q3W
     Route: 042
     Dates: start: 20080706, end: 20080706
  11. PROPAFENONE HCL [Concomitant]
     Indication: DRUG USE FOR UNKNOWN INDICATION
     Dosage: UNK
     Dates: start: 20071001, end: 20080701
  12. ALLOPURINOL [Concomitant]
     Indication: DRUG USE FOR UNKNOWN INDICATION
     Dosage: UNK
     Dates: start: 20071201, end: 20080701
  13. KALII CHLORIDI [Concomitant]
     Indication: DRUG USE FOR UNKNOWN INDICATION
     Dosage: UNK
     Dates: start: 20071201, end: 20080701
  14. TIMOLOL MALEATE [Concomitant]
     Indication: DRUG USE FOR UNKNOWN INDICATION
     Dosage: UNK
     Dates: end: 20080701
  15. ENOXAPARIN SODIUM [Concomitant]
     Indication: DRUG USE FOR UNKNOWN INDICATION
     Dosage: UNK
     Dates: start: 20080301, end: 20080701

REACTIONS (2)
  - ASPIRATION [None]
  - METABOLIC DISORDER [None]
